FAERS Safety Report 5653970-8 (Version None)
Quarter: 2008Q1

REPORT INFORMATION
  Report Type: 
  Country: None (occurrence: None)
  Receive Date: 20080306
  Receipt Date: 20080228
  Transmission Date: 20080703
  Serious: Yes (Death, Other)
  Sender: FDA-Public Use
  Company Number: HQWYE394522OCT03

PATIENT
  Sex: Female

DRUGS (3)
  1. PREMARIN [Suspect]
     Dosage: UNSPECIFIED DAILY FOR A NUMBER OF YEARS
     Route: 048
  2. PROVERA [Suspect]
  3. PREMPRO [Suspect]

REACTIONS (3)
  - NEOPLASM [None]
  - NEOPLASM MALIGNANT [None]
  - OVARIAN CANCER METASTATIC [None]
